FAERS Safety Report 8025615-3 (Version None)
Quarter: 2012Q1

REPORT INFORMATION
  Report Type: 
  Country: None (occurrence: None)
  Receive Date: 20120105
  Receipt Date: 20111227
  Transmission Date: 20120608
  Serious: Yes (Other)
  Sender: FDA-Public Use
  Company Number: US-ELI_LILLY_AND_COMPANY-US200711000830

PATIENT
  Sex: Female

DRUGS (7)
  1. FORTEO [Suspect]
     Dosage: 20 UG, QD
     Route: 065
     Dates: end: 20090101
  2. FORTEO [Suspect]
     Dosage: 20 UG, QD
     Route: 065
     Dates: start: 20110101
  3. FORTEO [Suspect]
     Dosage: 20 UG, QD
     Route: 065
     Dates: end: 20070101
  4. FORTEO [Suspect]
     Dosage: 20 UG, QD
     Dates: start: 20071105
  5. NIACIN [Concomitant]
     Indication: BLOOD CHOLESTEROL
  6. FORTEO [Suspect]
     Indication: OSTEOPOROSIS
     Dosage: 20 UG, QD
     Dates: start: 20070605, end: 20070713
  7. NORDITROPIN [Concomitant]

REACTIONS (7)
  - DRUG DOSE OMISSION [None]
  - ARTHROPATHY [None]
  - HIP SURGERY [None]
  - DEVICE FAILURE [None]
  - MEMORY IMPAIRMENT [None]
  - FEMUR FRACTURE [None]
  - BONE DISORDER [None]
